FAERS Safety Report 26087258 (Version 1)
Quarter: 2025Q4

REPORT INFORMATION
  Report Type: Report from Study
  Country: US (occurrence: US)
  Receive Date: 20251125
  Receipt Date: 20251125
  Transmission Date: 20260117
  Serious: Yes (Other)
  Sender: GILEAD
  Company Number: US-GILEAD-2025-0735857

PATIENT
  Age: 45 Year
  Sex: Female

DRUGS (2)
  1. SELADELPAR [Suspect]
     Active Substance: SELADELPAR
     Indication: Primary biliary cholangitis
     Dosage: 10 MG, QD (EVERY MORNING)
     Route: 065
     Dates: start: 202410
  2. URSODIOL [Concomitant]
     Active Substance: URSODIOL
     Dosage: 500MG IN THE MORNING AND 500MG IN THE EVENING
     Dates: start: 2015

REACTIONS (3)
  - Haemorrhage urinary tract [Not Recovered/Not Resolved]
  - Urinary tract pain [Not Recovered/Not Resolved]
  - Blood alkaline phosphatase increased [Not Recovered/Not Resolved]

NARRATIVE: CASE EVENT DATE: 20251106
